FAERS Safety Report 5634184-4 (Version None)
Quarter: 2008Q1

REPORT INFORMATION
  Report Type: 
  Country: None (occurrence: None)
  Receive Date: 20080219
  Receipt Date: 20080208
  Transmission Date: 20080703
  Serious: Yes (Hospitalization)
  Sender: FDA-Public Use
  Company Number: 18362

PATIENT
  Age: 3 Year
  Sex: Male
  Weight: 13.3 kg

DRUGS (1)
  1. METHOTREXATE [Suspect]
     Indication: ACUTE LYMPHOCYTIC LEUKAEMIA

REACTIONS (8)
  - ALTERED STATE OF CONSCIOUSNESS [None]
  - APHASIA [None]
  - CORNEAL REFLEX DECREASED [None]
  - NEUROTOXICITY [None]
  - STARING [None]
  - TREMOR [None]
  - UNRESPONSIVE TO STIMULI [None]
  - URINARY INCONTINENCE [None]
